FAERS Safety Report 5119782-9 (Version None)
Quarter: 2006Q4

REPORT INFORMATION
  Report Type: 
  Country: None (occurrence: None)
  Receive Date: 20061003
  Receipt Date: 20060920
  Transmission Date: 20070319
  Serious: Yes (Hospitalization, Other)
  Sender: FDA-Public Use
  Company Number: PHBS2006JP14705

PATIENT
  Sex: Male

DRUGS (5)
  1. CYCLOSPORINE [Suspect]
     Indication: RENAL TRANSPLANT
     Route: 048
  2. SIMULECT [Suspect]
     Indication: RENAL TRANSPLANT
     Route: 042
  3. CYCLOPHOSPHAMIDE [Concomitant]
     Indication: RENAL TRANSPLANT
     Route: 065
  4. PREDNISOLONE [Concomitant]
     Indication: RENAL TRANSPLANT
     Route: 065
  5. MIZORIBINE [Concomitant]
     Indication: RENAL TRANSPLANT
     Route: 048

REACTIONS (2)
  - HEPATITIS [None]
  - KIDNEY TRANSPLANT REJECTION [None]
